FAERS Safety Report 16083951 (Version 1)
Quarter: 2019Q1

REPORT INFORMATION
  Report Type: Spontaneous
  Country: US (occurrence: US)
  Receive Date: 20190214
  Receipt Date: 20190214
  Transmission Date: 20190418
  Serious: No
  Sender: FDA-Public Use
  Company Number: None

PATIENT
  Age: 38 Year
  Sex: Female

DRUGS (1)
  1. OLUMIANT [Suspect]
     Active Substance: BARICITINIB
     Indication: RHEUMATOID ARTHRITIS
     Route: 048
     Dates: start: 201809

REACTIONS (8)
  - Loss of consciousness [None]
  - Product dose omission [None]
  - Sinusitis [None]
  - Constipation [None]
  - Diarrhoea [None]
  - Fall [None]
  - Product distribution issue [None]
  - Economic problem [None]
